FAERS Safety Report 16891521 (Version 6)
Quarter: 2020Q2

REPORT INFORMATION
  Report Type: Spontaneous
  Country: CA (occurrence: CA)
  Receive Date: 20191007
  Receipt Date: 20200615
  Transmission Date: 20200713
  Serious: Yes (Hospitalization, Other)
  Sender: FDA-Public Use
  Company Number: CA-NODEN PHARMA DAC-NOD-2019-000163

PATIENT
  Age: 78 Year
  Sex: Female

DRUGS (68)
  1. ACETYLSALICYLIC ACID [Suspect]
     Active Substance: ASPIRIN
     Indication: CEREBROVASCULAR ACCIDENT
     Dosage: 81 MILLIGRAM, QD
     Route: 065
  2. LEVOTHYROXINE SODIUM. [Suspect]
     Active Substance: LEVOTHYROXINE SODIUM
     Indication: PRODUCT USED FOR UNKNOWN INDICATION
  3. METHOCARBAMOL. [Suspect]
     Active Substance: METHOCARBAMOL
     Indication: PRODUCT USED FOR UNKNOWN INDICATION
  4. ACETAMINOPHEN. [Concomitant]
     Active Substance: ACETAMINOPHEN
     Indication: PAIN
     Dosage: 325 MILLIGRAM, BID
     Route: 065
  5. ACEBUTOLOL HYDROCHLORIDE. [Concomitant]
     Active Substance: ACEBUTOLOL HYDROCHLORIDE
     Indication: HYPERTENSION
     Dosage: UNK
     Route: 065
  6. ALISKIREN [Suspect]
     Active Substance: ALISKIREN
     Indication: HYPERTENSION
     Dosage: 300 MILLIGRAM, QD
     Route: 065
  7. ACEBUTOLOL HYDROCHLORIDE. [Suspect]
     Active Substance: ACEBUTOLOL HYDROCHLORIDE
     Indication: HYPERTENSION
     Dosage: UNK
     Route: 065
  8. GLICLAZIDE [Suspect]
     Active Substance: GLICLAZIDE
     Indication: DIABETES MELLITUS
     Dosage: 60 MILLIGRAM, QD
     Route: 065
  9. HYDRALAZINE [Suspect]
     Active Substance: HYDRALAZINE HYDROCHLORIDE
     Indication: PRODUCT USED FOR UNKNOWN INDICATION
  10. METFORMIN HYDROCHLORIDE. [Suspect]
     Active Substance: METFORMIN HYDROCHLORIDE
     Indication: DIABETES MELLITUS
     Dosage: 500 MILLIGRAM, Q12H
     Route: 065
  11. METHOCARBAMOL. [Suspect]
     Active Substance: METHOCARBAMOL
     Indication: PAIN
     Dosage: 400 MILLIGRAM, Q12H
     Route: 065
  12. SITAGLIPTIN [Concomitant]
     Active Substance: SITAGLIPTIN
     Indication: PRODUCT USED FOR UNKNOWN INDICATION
  13. SALBUTAMOL SULFATE [Concomitant]
     Active Substance: ALBUTEROL SULFATE
     Indication: PRODUCT USED FOR UNKNOWN INDICATION
     Dosage: UNK, AS REQUIRED
     Route: 065
  14. FLUTICASONE PROPIONATE. [Concomitant]
     Active Substance: FLUTICASONE PROPIONATE
     Indication: WHEEZING
     Dosage: 2 DOSAGE FORM, Q12H, 2 EVERY ONE DAY
     Route: 065
  15. CALCIPOTRIOL [Suspect]
     Active Substance: CALCIPOTRIENE
     Indication: PSORIASIS
     Dosage: UNK
     Route: 065
  16. CALCIUM [Suspect]
     Active Substance: CALCIUM
     Indication: OSTEOPOROSIS
     Dosage: UNK
     Route: 065
  17. BETAMETHASONE VALERATE. [Suspect]
     Active Substance: BETAMETHASONE VALERATE
     Indication: PSORIASIS
     Dosage: UNK
     Route: 065
  18. LEVOTHYROXINE SODIUM. [Suspect]
     Active Substance: LEVOTHYROXINE SODIUM
     Indication: HYPOTHYROIDISM
     Dosage: 0.088 MILLIGRAM, QD
     Route: 065
  19. RANITIDINE. [Suspect]
     Active Substance: RANITIDINE
     Indication: DYSPEPSIA
     Dosage: 150 MILLIGRAM
     Route: 065
  20. SIMVASTATIN. [Suspect]
     Active Substance: SIMVASTATIN
     Indication: CEREBROVASCULAR ACCIDENT
     Dosage: 10 MILLIGRAM, QD
     Route: 065
  21. PLANTAGO AFRA [Concomitant]
     Active Substance: HERBALS
     Indication: PRODUCT USED FOR UNKNOWN INDICATION
     Dosage: UNK
     Route: 065
  22. SITAGLIPTIN [Concomitant]
     Active Substance: SITAGLIPTIN
     Indication: DIABETES MELLITUS
     Dosage: 100 MILLIGRAM, QD
     Route: 065
  23. VITAMIN D                          /00107901/ [Concomitant]
     Active Substance: ERGOCALCIFEROL
     Indication: OSTEOPOROSIS
     Dosage: UNK
     Route: 065
  24. CALCIUM CARBONATE. [Concomitant]
     Active Substance: CALCIUM CARBONATE
     Dosage: UNK
     Route: 065
  25. BETAMETHASONE. [Suspect]
     Active Substance: BETAMETHASONE
     Indication: PSORIASIS
     Dosage: UNK
     Route: 065
  26. TRAMADOL HYDROCHLORIDE. [Suspect]
     Active Substance: TRAMADOL HYDROCHLORIDE
     Indication: PAIN
     Dosage: UNK
     Route: 065
  27. VITAMIN B12 [Suspect]
     Active Substance: CYANOCOBALAMIN
     Indication: PRODUCT USED FOR UNKNOWN INDICATION
     Dosage: UNK
     Route: 065
  28. CALCIUM CARBONATE. [Suspect]
     Active Substance: CALCIUM CARBONATE
     Indication: OSTEOPOROSIS
     Dosage: 1 DOSAGE FORM
     Route: 065
  29. PRAMIPEXOLE HYDROCHLORIDE [Concomitant]
     Active Substance: PRAMIPEXOLE DIHYDROCHLORIDE
     Indication: RESTLESS LEGS SYNDROME
     Dosage: 0.25 MILLIGRAM, QD
     Route: 065
  30. BETAMETHASONE. [Concomitant]
     Active Substance: BETAMETHASONE
     Indication: PSORIASIS
     Dosage: UNK
     Route: 065
  31. RANITIDINE. [Concomitant]
     Active Substance: RANITIDINE
     Indication: PRODUCT USED FOR UNKNOWN INDICATION
     Dosage: 150 MILLIGRAM, AS REQUIRED
     Route: 065
  32. ALISKIREN [Suspect]
     Active Substance: ALISKIREN
     Indication: PRODUCT USED FOR UNKNOWN INDICATION
  33. ALLOPURINOL. [Suspect]
     Active Substance: ALLOPURINOL
     Indication: PROPHYLAXIS
     Dosage: 250 MILLIGRAM, QD
     Route: 065
  34. ALLOPURINOL. [Suspect]
     Active Substance: ALLOPURINOL
     Dosage: 100 MILLIGRAM
     Route: 065
  35. CALCIUM [Suspect]
     Active Substance: CALCIUM
     Indication: PRODUCT USED FOR UNKNOWN INDICATION
  36. FLUTICASONE. [Suspect]
     Active Substance: FLUTICASONE
     Indication: WHEEZING
     Dosage: 2 DOSAGE FORM, Q12H
     Route: 065
  37. GLICLAZIDE [Suspect]
     Active Substance: GLICLAZIDE
     Indication: PRODUCT USED FOR UNKNOWN INDICATION
     Dosage: 30 MILLIGRAM, Q12H
     Route: 065
  38. RANITIDINE. [Suspect]
     Active Substance: RANITIDINE
     Indication: PRODUCT USED FOR UNKNOWN INDICATION
  39. SALBUTAMOL SULFATE [Suspect]
     Active Substance: ALBUTEROL SULFATE
     Indication: PRODUCT USED FOR UNKNOWN INDICATION
     Dosage: UNK
     Route: 065
  40. CALCIUM CARBONATE. [Concomitant]
     Active Substance: CALCIUM CARBONATE
     Dosage: UNK
     Route: 065
  41. LEVOTHYROXINE SODIUM. [Concomitant]
     Active Substance: LEVOTHYROXINE SODIUM
     Indication: HYPOTHYROIDISM
     Dosage: 0.088 MILLIGRAM, QD
     Route: 065
  42. SIMVASTATIN. [Concomitant]
     Active Substance: SIMVASTATIN
     Indication: CEREBROVASCULAR ACCIDENT
     Dosage: 10 MILLIGRAM, QD
     Route: 065
  43. TRAMADOL HYDROCHLORIDE. [Concomitant]
     Active Substance: TRAMADOL HYDROCHLORIDE
     Indication: PAIN
     Dosage: UNK
     Route: 065
  44. FLUTICASONE PROPIONATE. [Concomitant]
     Active Substance: FLUTICASONE PROPIONATE
     Indication: COUGH
  45. METHOCARBAMOL W/PARACETAMOL [Concomitant]
     Active Substance: ACETAMINOPHEN\METHOCARBAMOL
     Indication: BACK PAIN
     Dosage: UNK UNK, BID
     Route: 065
  46. AMLODIPINE [Suspect]
     Active Substance: AMLODIPINE BESYLATE
     Indication: HYPERTENSION
     Dosage: 10 MILLIGRAM, QD
     Route: 065
  47. BETAMETHASONE. [Suspect]
     Active Substance: BETAMETHASONE
     Dosage: UNK
     Route: 065
  48. HYDRALAZINE [Suspect]
     Active Substance: HYDRALAZINE HYDROCHLORIDE
     Indication: HYPERTENSION
     Dosage: UNK
     Route: 065
  49. SITAGLIPTIN [Suspect]
     Active Substance: SITAGLIPTIN
     Indication: DIABETES MELLITUS
     Dosage: 100 MILLIGRAM, QD
     Route: 065
  50. PANTOPRAZOLE [Suspect]
     Active Substance: PANTOPRAZOLE
     Indication: PRODUCT USED FOR UNKNOWN INDICATION
     Dosage: 40 MILLIGRAM, QD
     Route: 065
  51. PRAMIPEXOLE HYDROCHLORIDE [Suspect]
     Active Substance: PRAMIPEXOLE DIHYDROCHLORIDE
     Indication: RESTLESS LEGS SYNDROME
     Dosage: 0.25 MILLIGRAM, QD
     Route: 065
  52. RISEDRONIC ACID [Suspect]
     Active Substance: RISEDRONIC ACID
     Dosage: 1 DOSAGE FORM
     Route: 065
  53. FUROSEMIDE. [Concomitant]
     Active Substance: FUROSEMIDE
     Indication: OEDEMA PERIPHERAL
     Dosage: 40 MILLIGRAM, QD
     Route: 065
  54. PSYLLIUM                           /01328801/ [Concomitant]
     Active Substance: PLANTAGO SEED
     Indication: CONSTIPATION
     Dosage: UNK, BID
     Route: 065
  55. FLUTICASONE. [Suspect]
     Active Substance: FLUTICASONE
     Indication: COUGH
  56. ACETYLSALICYLIC ACID [Concomitant]
     Active Substance: ASPIRIN
     Indication: CEREBROVASCULAR ACCIDENT
     Dosage: 81 MILLIGRAM, QD
     Route: 065
  57. CALCIPOTRIOL [Concomitant]
     Active Substance: CALCIPOTRIENE
     Indication: PSORIASIS
     Dosage: UNK UNK, QD
     Route: 065
  58. ALLOPURINOL. [Concomitant]
     Active Substance: ALLOPURINOL
     Indication: GOUT
     Dosage: 250 MILLIGRAM, QD
     Route: 065
  59. ALLOPURINOL. [Suspect]
     Active Substance: ALLOPURINOL
     Indication: GOUT
     Dosage: 200 MILLIGRAM
     Route: 065
  60. FUROSEMIDE. [Suspect]
     Active Substance: FUROSEMIDE
     Indication: OEDEMA PERIPHERAL
     Dosage: 40 MILLIGRAM, QD
     Route: 065
  61. LABETALOL [Suspect]
     Active Substance: LABETALOL\LABETALOL HYDROCHLORIDE
     Indication: HYPERTENSION
     Dosage: 200 MILLIGRAM, BID
     Route: 065
  62. RISEDRONIC ACID [Suspect]
     Active Substance: RISEDRONIC ACID
     Indication: OSTEOPOROSIS
     Dosage: 35 MILLIGRAM, QWK
     Route: 065
  63. VALSARTAN. [Suspect]
     Active Substance: VALSARTAN
     Indication: HYPERTENSION
     Dosage: 320 MILLIGRAM, QD
     Route: 065
  64. ERGOCALCIFEROL. [Concomitant]
     Active Substance: ERGOCALCIFEROL
     Indication: OSTEOPOROSIS
     Dosage: UNK, EVERY 1 DAYS
     Route: 065
  65. CALCIUM CARBONATE. [Concomitant]
     Active Substance: CALCIUM CARBONATE
     Indication: OSTEOPOROSIS
     Dosage: 1 DOSAGE FORM, ONE TIME DOSE, 2 EVERY 1 DAY
     Route: 065
  66. PANTOPRAZOLE [Concomitant]
     Active Substance: PANTOPRAZOLE
     Indication: PRODUCT USED FOR UNKNOWN INDICATION
     Dosage: 40 MILLIGRAM, QD
     Route: 065
  67. VITAMIN B12 [Concomitant]
     Active Substance: CYANOCOBALAMIN
     Indication: PRODUCT USED FOR UNKNOWN INDICATION
     Dosage: UNK
     Route: 065
  68. RISEDRONATE SODIUM. [Concomitant]
     Active Substance: RISEDRONATE SODIUM
     Indication: OSTEOPOROSIS
     Dosage: 35 MILLIGRAM, QWK
     Route: 065

REACTIONS (7)
  - Drug ineffective [Unknown]
  - Hypertension [Unknown]
  - Treatment noncompliance [Unknown]
  - Diabetes mellitus inadequate control [Unknown]
  - Peripheral swelling [Unknown]
  - Contusion [Unknown]
  - Blood pressure inadequately controlled [Unknown]
